FAERS Safety Report 9125848 (Version 2)
Quarter: 2013Q1

REPORT INFORMATION
  Report Type: Spontaneous
  Country: BR (occurrence: BR)
  Receive Date: 20130228
  Receipt Date: 20130329
  Transmission Date: 20140127
  Serious: Yes (Other)
  Sender: FDA-Public Use
  Company Number: PHHY2013BR018267

PATIENT
  Sex: Male
  Weight: 70 kg

DRUGS (3)
  1. DIOVAN HCT [Suspect]
     Dosage: 1 DF(320/12.5MG), DAILY
     Route: 048
  2. OMEPRAZOLE [Concomitant]
     Indication: BURNING SENSATION
     Dosage: 1 DF(20MG), DAILY
     Route: 048
  3. SIMVASTATIN [Concomitant]
     Indication: BLOOD CHOLESTEROL
     Dosage: 1 DF(20MG), QD AT NIGHT
     Route: 048

REACTIONS (2)
  - Blood pressure increased [Recovered/Resolved]
  - Sinusitis [Recovered/Resolved]
